FAERS Safety Report 6494689-3 (Version None)
Quarter: 2009Q4

REPORT INFORMATION
  Report Type: 
  Country: None (occurrence: None)
  Receive Date: 20091214
  Receipt Date: 20090320
  Transmission Date: 20100525
  Serious: No
  Sender: FDA-Public Use
  Company Number: US-BRISTOL-MYERS SQUIBB COMPANY-14544779

PATIENT
  Age: 21 Year
  Sex: Male

DRUGS (9)
  1. ABILIFY [Suspect]
     Indication: TOURETTE'S DISORDER
     Dosage: TAKEN 2MG
     Route: 048
     Dates: start: 20090101
  2. ABILIFY [Suspect]
     Indication: ATTENTION DEFICIT/HYPERACTIVITY DISORDER
     Dosage: TAKEN 2MG
     Route: 048
     Dates: start: 20090101
  3. ABILIFY [Suspect]
     Indication: OBSESSIVE-COMPULSIVE DISORDER
     Dosage: TAKEN 2MG
     Route: 048
     Dates: start: 20090101
  4. PROZAC [Concomitant]
  5. KLONOPIN [Concomitant]
  6. MINOCYCLINE [Concomitant]
  7. MELATONIN [Concomitant]
  8. CLOZAPINE [Concomitant]
  9. FOCALIN [Concomitant]

REACTIONS (2)
  - HIGH DENSITY LIPOPROTEIN INCREASED [None]
  - LIVER FUNCTION TEST ABNORMAL [None]
